FAERS Safety Report 8401371-1 (Version None)
Quarter: 2012Q2

REPORT INFORMATION
  Report Type: 
  Country: None (occurrence: None)
  Receive Date: 20120601
  Receipt Date: 20120522
  Transmission Date: 20120825
  Serious: Yes (Other)
  Sender: FDA-Public Use
  Company Number: JP-JNJFOC-20120518049

PATIENT
  Age: 23 Year
  Sex: Female

DRUGS (4)
  1. INFLIXIMAB, RECOMBINANT [Suspect]
     Dosage: INDUCTION THERAPY
     Route: 042
  2. INFLIXIMAB, RECOMBINANT [Suspect]
     Route: 042
  3. AZACITIDINE [Suspect]
     Indication: CROHN'S DISEASE
     Dosage: DAILY
     Route: 065
  4. INFLIXIMAB, RECOMBINANT [Suspect]
     Indication: CROHN'S DISEASE
     Route: 042

REACTIONS (2)
  - NO THERAPEUTIC RESPONSE [None]
  - INTESTINAL ANASTOMOSIS COMPLICATION [None]
